FAERS Safety Report 9695207 (Version 2)
Quarter: 2013Q4

REPORT INFORMATION
  Report Type: Spontaneous
  Country: SK (occurrence: SK)
  Receive Date: 20131119
  Receipt Date: 20131205
  Transmission Date: 20140711
  Serious: Yes (Other)
  Sender: FDA-Public Use
  Company Number: SK-ACTAVIS-2013-20552

PATIENT
  Age: 45 Year
  Sex: Female

DRUGS (9)
  1. QUETIAPINE (UNKNOWN) [Suspect]
     Indication: BIPOLAR I DISORDER
     Dosage: 100 MG, DAILY, IN THREE SEPARATE DOSES
     Route: 065
  2. QUETIAPINE (UNKNOWN) [Suspect]
     Dosage: 50 MG, DAILY
     Route: 065
  3. CLONAZEPAM [Concomitant]
     Indication: BIPOLAR I DISORDER
     Dosage: 4 MG, DAILY, IN 2 SEPARATE DOSES
     Route: 065
  4. DOXORUBICIN [Concomitant]
     Indication: BREAST CANCER
     Dosage: 60 MG/M2, EVERY 21 DAYS, 4 CYCLES
     Route: 042
     Dates: start: 20111017
  5. CYCLOPHOSPHAMIDE [Concomitant]
     Indication: BREAST CANCER
     Dosage: 600 MG/M2, EVERY 21 DAYS, 4 CYCLES
     Route: 042
     Dates: start: 20111017
  6. DEXAMETHASONE [Concomitant]
     Indication: PROPHYLAXIS
     Dosage: 8 MG, UNKNOWN
     Route: 042
  7. PACLITAXEL [Concomitant]
     Indication: BREAST CANCER
     Dosage: 90 MG/M2, UNKNOWN
     Route: 042
     Dates: start: 20120112, end: 20120405
  8. TRASTUZUMAB [Concomitant]
     Indication: BREAST CANCER
     Dosage: 4 MG/KG, DURING THE FIRST APPLICATION
     Route: 042
     Dates: start: 20120112
  9. TRASTUZUMAB [Concomitant]
     Dosage: 2 MG/KG, DURING APPLICATIONS 2-12
     Route: 042
     Dates: end: 20120405

REACTIONS (3)
  - Dermatitis allergic [Unknown]
  - Swelling face [Unknown]
  - Rhinorrhoea [Unknown]
